FAERS Safety Report 16203627 (Version 2)
Quarter: 2019Q4

REPORT INFORMATION
  Report Type: Report from Study
  Country: EG (occurrence: EG)
  Receive Date: 20190416
  Receipt Date: 20191115
  Transmission Date: 20200122
  Serious: Yes (Death)
  Sender: FDA-Public Use
  Company Number: EG-PFIZER INC-2019156524

PATIENT

DRUGS (6)
  1. RAPAMUNE [Suspect]
     Active Substance: SIROLIMUS
     Indication: IMMUNOSUPPRESSANT DRUG THERAPY
     Dosage: 10 MG, 1X/DAY
  2. METHYLPREDNISOLONE. [Concomitant]
     Active Substance: METHYLPREDNISOLONE
     Dosage: 500 MG, UNK, (ONE DAY BEFORE AND ON DAY OF SURGERY)
     Route: 042
  3. PREDNISOLONE. [Concomitant]
     Active Substance: PREDNISOLONE
     Dosage: 1 MG/KG, DAILY, (THEN GRADUALLY TAPERED DOWN TO 0.1 MG/KG BY THE 10TH MONTH POST-TRANSPLANTATION)
     Route: 048
  4. RAPAMUNE [Suspect]
     Active Substance: SIROLIMUS
     Dosage: 5 MG, 1X/DAY, (5 MG, 1X/DAY (MAINTENANCE DOSE)
  5. PROGRAF [Suspect]
     Active Substance: TACROLIMUS
     Indication: IMMUNOSUPPRESSANT DRUG THERAPY
     Dosage: 0.03 MG/KG, DAILY, (IN TWO EQUALLY DIVIDED DOSES)
  6. BASILIXIMAB [Concomitant]
     Active Substance: BASILIXIMAB
     Dosage: 20 MG, UNK, (AT SURGERY AND ON DAY FOUR POSTOPERATIVE)
     Route: 042

REACTIONS (1)
  - Pancreatic carcinoma [Fatal]
